FAERS Safety Report 5872505-8 (Version None)
Quarter: 2008Q3

REPORT INFORMATION
  Report Type: 
  Country: None (occurrence: None)
  Receive Date: 20080829
  Receipt Date: 20080814
  Transmission Date: 20090109
  Serious: Yes (Hospitalization)
  Sender: FDA-Public Use
  Company Number: 2008BI021159

PATIENT
  Age: 47 Year
  Sex: Female

DRUGS (4)
  1. AVONEX [Suspect]
     Indication: DISEASE PROGRESSION
     Dosage: 30 UG; QW; IM; 30 UG; QW; IM
     Route: 030
     Dates: end: 20080701
  2. AVONEX [Suspect]
     Indication: MULTIPLE SCLEROSIS
     Dosage: 30 UG; QW; IM; 30 UG; QW; IM
     Route: 030
     Dates: end: 20080701
  3. AVONEX [Suspect]
     Indication: DISEASE PROGRESSION
     Dosage: 30 UG; QW; IM; 30 UG; QW; IM
     Route: 030
     Dates: start: 20030101
  4. AVONEX [Suspect]
     Indication: MULTIPLE SCLEROSIS
     Dosage: 30 UG; QW; IM; 30 UG; QW; IM
     Route: 030
     Dates: start: 20030101

REACTIONS (7)
  - ANAPHYLACTIC SHOCK [None]
  - APNOEA [None]
  - CARDIAC ARREST [None]
  - CIRCULATORY COLLAPSE [None]
  - EPILEPSY [None]
  - LOSS OF CONSCIOUSNESS [None]
  - MULTIPLE SCLEROSIS RELAPSE [None]
